FAERS Safety Report 17167810 (Version 1)
Quarter: 2019Q4

REPORT INFORMATION
  Report Type: Spontaneous
  Country: ES (occurrence: ES)
  Receive Date: 20191218
  Receipt Date: 20191218
  Transmission Date: 20200122
  Serious: Yes (Death)
  Sender: FDA-Public Use
  Company Number: ES-TEVA-2019-ES-1153166

PATIENT
  Sex: Female

DRUGS (3)
  1. DOXORUBICIN [Suspect]
     Active Substance: DOXORUBICIN
     Indication: BREAST CANCER
     Dosage: NSABP-B27 REGIMEN; ADMINISTERED FOR 4 COURSES
     Route: 065
  2. CYCLOPHOSPHAMIDE. [Suspect]
     Active Substance: CYCLOPHOSPHAMIDE
     Indication: BREAST CANCER
     Dosage: NSABP-B27 REGIMEN; ADMINISTERED FOR 4 COURSES
     Route: 065
  3. DOCETAXEL. [Suspect]
     Active Substance: DOCETAXEL
     Indication: BREAST CANCER
     Dosage: NSABP-B27 REGIMEN; ADMINISTERED FOR 4 CYCLES
     Route: 065

REACTIONS (1)
  - Febrile neutropenia [Fatal]
